FAERS Safety Report 7606661-8 (Version None)
Quarter: 2011Q3

REPORT INFORMATION
  Report Type: 
  Country: None (occurrence: None)
  Receive Date: 20110713
  Receipt Date: 20100923
  Transmission Date: 20111222
  Serious: Yes (Hospitalization)
  Sender: FDA-Public Use
  Company Number: CA-ROCHE-711017

PATIENT
  Sex: Female
  Weight: 41.3 kg

DRUGS (48)
  1. MULTI-VITAMIN [Concomitant]
     Dates: start: 20000101
  2. MAGNESIUM GLUCOHEPTONATE [Concomitant]
     Dates: start: 20101209, end: 20101209
  3. MAGNESIUM GLUCOHEPTONATE [Concomitant]
     Dates: start: 20101210, end: 20101210
  4. TRASTUZUMAB [Suspect]
     Dosage: LAST DOSE:22 JULY 2010. DOSAGE FORM:INFUSION
     Route: 042
  5. CYCLOPHOSPHAMIDE [Suspect]
     Dosage: CYCLE 7 TREATMENT DELAYED.
     Route: 042
     Dates: start: 20100722
  6. IBUPROFEN (ADVIL) [Concomitant]
     Dosage: DRUG: ADVIL SINUS
     Dates: start: 19950101
  7. NASONEX [Concomitant]
     Dosage: TOTAL DAILY DOSE: 1 PUFF PRN
     Dates: start: 19950101
  8. ONDANSETRON [Concomitant]
     Dosage: FREQUENCY: PRN
     Dates: start: 20101026, end: 20101128
  9. DALTEPARIN SODIUM [Concomitant]
     Dosage: TDD: 5000 UNITS
     Dates: start: 20101125, end: 20101215
  10. PERTUZUMAB [Suspect]
     Dosage: LAST DOSE:30 SEPTEMBER 2010. DOSAGE FORM:INFUSION. CYCLE 7 TREATMENT DELAYED.
     Route: 042
  11. EPIRUBICIN [Suspect]
     Dosage: DOSE REDUCED. CYCLE 7 TREATMENT DELAYED.
     Route: 042
     Dates: start: 20100630
  12. FLUOROURACIL [Suspect]
     Dosage: CYCLE 3. CYCLE 7 TREATMENT DELAYED.
     Route: 042
     Dates: start: 20100722
  13. POTASSIUM CHLORIDE [Concomitant]
     Dates: start: 20101126, end: 20101126
  14. POTASSIUM CHLORIDE [Concomitant]
     Dates: start: 20101202, end: 20101203
  15. POTASSIUM CHLORIDE [Concomitant]
     Dates: start: 20101207, end: 20101207
  16. LASIX [Concomitant]
     Dates: start: 20101210, end: 20101210
  17. CYCLOPHOSPHAMIDE [Suspect]
     Dosage: DOSE REDUCTION AT CYCLE 2
     Route: 042
     Dates: start: 20100630
  18. VITAMIN B COMPLEX CAP [Concomitant]
     Route: 048
     Dates: start: 20070101, end: 20100609
  19. ONDANSETRON [Concomitant]
     Dates: start: 20100609, end: 20100722
  20. ONDANSETRON [Concomitant]
     Dosage: FREQUENCY: PRN
     Dates: start: 20101210, end: 20101215
  21. MAXERAN [Concomitant]
     Route: 042
     Dates: start: 20101110, end: 20101202
  22. THIAMINE [Concomitant]
     Dates: start: 20101206, end: 20101213
  23. TRASTUZUMAB [Suspect]
     Dosage: LOADING DOSE, FORM: INFUSION
     Route: 042
     Dates: start: 20100609
  24. ONDANSETRON [Concomitant]
     Dosage: FREQ: PRN
     Dates: start: 20101119, end: 20101119
  25. VITAMIN K TAB [Concomitant]
     Dates: start: 20101125, end: 20101125
  26. GRAVOL TAB [Concomitant]
     Dates: start: 20101117, end: 20101118
  27. ONDANSETRON [Concomitant]
     Dosage: FREQUENCY: PRN
     Dates: start: 20101201, end: 20101201
  28. MAXERAN [Concomitant]
     Route: 042
     Dates: start: 20100609, end: 20100609
  29. MULTI-VITAMIN [Concomitant]
     Dates: start: 20101127, end: 20101215
  30. VITAMIN K TAB [Concomitant]
     Dates: start: 20101127, end: 20101127
  31. POTASSIUM CHLORIDE [Concomitant]
     Dates: start: 20101208, end: 20101208
  32. MAGNESIUM GLUCOHEPTONATE [Concomitant]
     Dates: start: 20101208, end: 20101208
  33. TRASTUZUMAB [Suspect]
     Dosage: LAST DOSE PRIOR TO SAE: 30 OCTOBER 2010, CYCLE 7 TREATMENT DELAYED.
     Route: 042
  34. EPIRUBICIN [Suspect]
     Route: 042
     Dates: start: 20100609
  35. CYCLOPHOSPHAMIDE [Suspect]
     Dosage: FORM:INFUSION
     Route: 042
     Dates: start: 20100609
  36. OMEGA [Concomitant]
     Dosage: DRUG: OMEGA 3
     Route: 048
     Dates: start: 20070101, end: 20100609
  37. TYLENOL W/ CODEINE NO. 3 [Concomitant]
     Dosage: TDD: PRN
     Dates: start: 20101101, end: 20101101
  38. GRAVOL TAB [Concomitant]
     Dates: start: 20101125, end: 20101125
  39. POTASSIUM CHLORIDE [Concomitant]
     Dates: start: 20101205, end: 20101205
  40. PERTUZUMAB [Suspect]
     Dosage: LOADING DOSE.
     Route: 042
     Dates: start: 20100609
  41. FLUOROURACIL [Suspect]
     Dosage: LAST DOSE:22 JULY 2010
     Route: 042
     Dates: start: 20100609
  42. FLUOROURACIL [Suspect]
     Dosage: DOSE REDUCTION AT CYCLE 2
     Route: 042
     Dates: start: 20100630
  43. DOCETAXEL [Suspect]
     Dosage: LAST DOSE:30 SEPTEMBER 2010. DOSAGE FORM:INFUSION. CYCLE 7 TREATMENT DELAYED.
     Route: 042
     Dates: start: 20100819
  44. REACTINE [Concomitant]
     Dates: start: 19950101
  45. DEXAMETHASONE [Concomitant]
     Dosage: DAY 1 EACH CYCLE
     Dates: start: 20100608
  46. DEXAMETHASONE [Concomitant]
     Dates: start: 20100609, end: 20100609
  47. GRAVOL TAB [Concomitant]
     Dates: start: 20101127, end: 20101202
  48. SODIUM BICARBONATE [Concomitant]
     Dates: start: 20101206, end: 20101206

REACTIONS (3)
  - CLOSTRIDIAL INFECTION [None]
  - URINARY TRACT INFECTION [None]
  - PSEUDOMEMBRANOUS COLITIS [None]
